FAERS Safety Report 16264321 (Version 1)
Quarter: 2019Q2

REPORT INFORMATION
  Report Type: Spontaneous
  Country: FR (occurrence: FR)
  Receive Date: 20190502
  Receipt Date: 20190502
  Transmission Date: 20190711
  Serious: Yes (Other)
  Sender: FDA-Public Use
  Company Number: FR-PFIZER INC-2019183291

PATIENT
  Age: 7 Year
  Sex: Female

DRUGS (1)
  1. ALPRAZOLAM. [Suspect]
     Active Substance: ALPRAZOLAM
     Indication: CHEMICAL SUBMISSION
     Route: 048

REACTIONS (1)
  - Chemical submission [Recovered/Resolved]

NARRATIVE: CASE EVENT DATE: 20160316
